FAERS Safety Report 10052645 (Version 1)
Quarter: 2014Q2

REPORT INFORMATION
  Report Type: Spontaneous
  Country: US (occurrence: US)
  Receive Date: 20140402
  Receipt Date: 20140402
  Transmission Date: 20141212
  Serious: Yes (Other)
  Sender: FDA-Public Use
  Company Number: US-BAYER-2014-048983

PATIENT
  Age: 40 Year
  Sex: Female

DRUGS (6)
  1. YASMIN [Suspect]
  2. YAZ [Suspect]
  3. HYDROCODONE/ACETAMINOPHEN [Concomitant]
     Dosage: 5/500
  4. CELEBREX [Concomitant]
     Dosage: 200 MG, UNK
     Dates: start: 20060728, end: 20070421
  5. TRAMADOL [Concomitant]
     Dosage: 37.5/325
  6. PREVACID [Concomitant]
     Dosage: 3 MG/PER 1 ML
     Dates: start: 20060419, end: 20070630

REACTIONS (2)
  - Thrombophlebitis superficial [None]
  - Deep vein thrombosis [None]
